FAERS Safety Report 23587383 (Version 3)
Quarter: 2024Q3

REPORT INFORMATION
  Report Type: Spontaneous
  Country: US (occurrence: US)
  Receive Date: 20240301
  Receipt Date: 20240912
  Transmission Date: 20241017
  Serious: Yes (Hospitalization, Other)
  Sender: PFIZER
  Company Number: US-PFIZER INC-202300367503

PATIENT
  Age: 10 Year
  Sex: Male
  Weight: 62.7 kg

DRUGS (16)
  1. OXBRYTA [Suspect]
     Active Substance: VOXELOTOR
     Dosage: 900 MG, 1X/DAY
     Route: 048
     Dates: start: 20231103
  2. OXBRYTA [Suspect]
     Active Substance: VOXELOTOR
     Dosage: 900 MG, 1X/DAY
     Route: 048
     Dates: start: 20231104
  3. OXBRYTA [Suspect]
     Active Substance: VOXELOTOR
     Dosage: 300 MG TABLETS FOR ORAL SUSPENSION. TAKES 3 TABLETS PREPARED AS DIRECTED
     Route: 048
  4. AMOXICILLIN [Concomitant]
     Active Substance: AMOXICILLIN
     Indication: Infection
     Dosage: 250MG CHEWABLE; CHEW AND SWALLOW 4 TABLETS 3 TIMES DAILY FOR 5 DAYS AT NIGHT
  5. AMOXICILLIN [Concomitant]
     Active Substance: AMOXICILLIN
     Indication: Illness
  6. MONTELUKAST [Concomitant]
     Active Substance: MONTELUKAST SODIUM
     Indication: Asthma
     Dosage: 5MG CHEW AND SWALLOW ONE TABLET BY MOUTH EVERY EVENING
     Route: 048
     Dates: start: 2015
  7. MONTELUKAST [Concomitant]
     Active Substance: MONTELUKAST SODIUM
     Indication: Seasonal allergy
  8. FOLIC ACID [Concomitant]
     Active Substance: FOLIC ACID
     Indication: Sickle cell disease
     Dosage: 1MG; TAKES ONE TABLET BY MOUTH ONCE A DAY
     Route: 048
     Dates: start: 2014
  9. HYDROXYUREA [Concomitant]
     Active Substance: HYDROXYUREA
     Indication: Sickle cell disease
     Dosage: TAKES 17.5ML BY MOUTH ONCE DAILY
     Route: 048
  10. LEVOCABASTINE HYDROCHLORIDE [Concomitant]
     Active Substance: LEVOCABASTINE HYDROCHLORIDE
     Indication: Hypersensitivity
     Dosage: (10MG; TAKES 1 TABLET BY MOUTH DAILY)
     Route: 048
     Dates: start: 2015
  11. LEVOCABASTINE HYDROCHLORIDE [Concomitant]
     Active Substance: LEVOCABASTINE HYDROCHLORIDE
     Indication: Asthma
  12. ERGOCALCIFEROL [Concomitant]
     Active Substance: ERGOCALCIFEROL
     Indication: Vitamin D
     Dosage: 200MCG DROP; TAKES 6ML BY MOUTH EVERY 7 DAYS.
     Route: 048
     Dates: start: 2020
  13. SYMBICORT [Concomitant]
     Active Substance: BUDESONIDE\FORMOTEROL FUMARATE DIHYDRATE
     Indication: Asthma
     Dosage: 160/4.5; INHALE 2 PUFFS BY MOUTH TWICE A DAY
     Route: 048
     Dates: start: 2014
  14. ALBUTEROL [Concomitant]
     Active Substance: ALBUTEROL
     Indication: Wheezing
     Dosage: 18GM; 2 PUFFS EVERY 4 HOURS AS NEEDED FOR WHEEZING
     Dates: start: 2014
  15. OXYCODONE [Concomitant]
     Active Substance: OXYCODONE
     Indication: Pain
     Dosage: TAKES 1 TABLET BY MOUTH EVERY 8 HOURS FOR 2 DAYS AS NEEDED FOR PAIN
     Route: 048
     Dates: start: 2023
  16. KETAMINE [Concomitant]
     Active Substance: KETAMINE
     Dosage: UNK

REACTIONS (2)
  - Sickle cell anaemia with crisis [Not Recovered/Not Resolved]
  - Hypertension [Unknown]

NARRATIVE: CASE EVENT DATE: 20240101
